FAERS Safety Report 9570908 (Version 2)
Quarter: 2013Q4

REPORT INFORMATION
  Report Type: Spontaneous
  Country: CA (occurrence: CA)
  Receive Date: 20131001
  Receipt Date: 20131004
  Transmission Date: 20140711
  Serious: Yes (Hospitalization, Other)
  Sender: FDA-Public Use
  Company Number: CA-AMGEN-CANSP2013068405

PATIENT
  Age: 65 Year
  Sex: Male

DRUGS (11)
  1. ENBREL [Suspect]
     Indication: PSORIATIC ARTHROPATHY
     Dosage: 50 MG, UNK
     Route: 065
     Dates: start: 20120220
  2. METHOTREXATE [Concomitant]
     Dosage: UNK
     Route: 058
  3. SULFASALAZINE [Concomitant]
     Dosage: 500 MG, QD
  4. LISINOPRIL [Concomitant]
     Dosage: 20 MG, QD
  5. FELODIPINE [Concomitant]
     Dosage: 10 MG, QD
  6. TRAMADOL [Concomitant]
     Dosage: UNK UNK, AS NECESSARY
  7. TAMSULOSIN SANDOZ [Concomitant]
     Dosage: UNK UNK, ONE TABLET DAILY
  8. SANDOZ RABEPRAZOLE [Concomitant]
     Dosage: 20 MG, QD
  9. VITAMIN B12                        /00056201/ [Concomitant]
     Dosage: 1200 MG, QD
  10. FOLIC ACID [Concomitant]
     Dosage: 1 MG, QD
  11. TYLENOL                            /00020001/ [Concomitant]
     Dosage: 600 MG, PRN

REACTIONS (4)
  - Pyrexia [Unknown]
  - Sepsis [Recovered/Resolved]
  - Urinary tract infection [Unknown]
  - Pain in extremity [Not Recovered/Not Resolved]
